FAERS Safety Report 9884355 (Version 2)
Quarter: 2014Q1

REPORT INFORMATION
  Report Type: Spontaneous
  Country: US (occurrence: US)
  Receive Date: 20140210
  Receipt Date: 20140210
  Transmission Date: 20141002
  Serious: No
  Sender: FDA-Public Use
  Company Number: US-ALLERGAN-1316092US

PATIENT
  Sex: Female

DRUGS (1)
  1. BOTOX [Suspect]
     Indication: MIGRAINE
     Dosage: UNK
     Dates: start: 20130916, end: 20130916

REACTIONS (3)
  - Antibody test positive [Unknown]
  - Drug ineffective [Unknown]
  - Migraine [Unknown]
